FAERS Safety Report 10007248 (Version 1)
Quarter: 2014Q1

REPORT INFORMATION
  Report Type: Spontaneous
  Country: US (occurrence: None)
  Receive Date: 20140312
  Receipt Date: 20140312
  Transmission Date: 20141002
  Serious: Yes (Other)
  Sender: FDA-Public Use
  Company Number: None

PATIENT
  Age: 42 Year
  Sex: Female
  Weight: 138.35 kg

DRUGS (2)
  1. VENLAFAXINE [Suspect]
     Route: 048
     Dates: start: 201401
  2. VENLAFAXINE [Suspect]
     Route: 048
     Dates: start: 201401

REACTIONS (2)
  - Condition aggravated [None]
  - Product substitution issue [None]
